FAERS Safety Report 7805297-3 (Version None)
Quarter: 2011Q4

REPORT INFORMATION
  Report Type: 
  Country: None (occurrence: None)
  Receive Date: 20111010
  Receipt Date: 20110920
  Transmission Date: 20120403
  Serious: Yes (Death)
  Sender: FDA-Public Use
  Company Number: DE-PFIZER INC-2011228803

PATIENT
  Sex: Male

DRUGS (3)
  1. ARGATRA [Suspect]
     Indication: HEPARIN-INDUCED THROMBOCYTOPENIA
     Dosage: 0.48 UG/KG/MIN
     Route: 042
  2. ENOXAPARIN SODIUM [Suspect]
     Indication: ANTICOAGULANT THERAPY
  3. ARGATRA [Suspect]
     Dosage: 0.19 UG/KG/MIN
     Route: 042

REACTIONS (1)
  - PULMONARY EMBOLISM [None]
